FAERS Safety Report 25494693 (Version 1)
Quarter: 2025Q2

REPORT INFORMATION
  Report Type: Report from Study
  Country: CO (occurrence: CO)
  Receive Date: 20250630
  Receipt Date: 20250630
  Transmission Date: 20250716
  Serious: Yes (Death, Hospitalization, Other)
  Sender: ABBVIE
  Company Number: CO-ABBVIE-6100323

PATIENT
  Age: 81 Year
  Sex: Male

DRUGS (2)
  1. VENETOCLAX [Suspect]
     Active Substance: VENETOCLAX
     Indication: Acute myeloid leukaemia
     Route: 048
     Dates: start: 20241229, end: 20250118
  2. AZACITIDINE [Suspect]
     Active Substance: AZACITIDINE
     Indication: Acute myeloid leukaemia
     Route: 065
     Dates: start: 20241229, end: 20250104

REACTIONS (10)
  - Oesophageal varices haemorrhage [Fatal]
  - Pyrexia [Recovered/Resolved with Sequelae]
  - Neutropenia [Recovered/Resolved]
  - Febrile neutropenia [Recovered/Resolved]
  - Clostridium difficile infection [Recovered/Resolved]
  - Pneumonia klebsiella [Not Recovered/Not Resolved]
  - Amoebiasis [Recovered/Resolved]
  - Gastroenteritis Escherichia coli [Recovered/Resolved]
  - Purpura [Recovered/Resolved]
  - Acute myeloid leukaemia recurrent [Not Recovered/Not Resolved]

NARRATIVE: CASE EVENT DATE: 20241230
